FAERS Safety Report 5492951-4 (Version None)
Quarter: 2007Q4

REPORT INFORMATION
  Report Type: 
  Country: None (occurrence: None)
  Receive Date: 20071023
  Receipt Date: 20071012
  Transmission Date: 20080405
  Serious: Yes (Hospitalization)
  Sender: FDA-Public Use
  Company Number: IN-BRISTOL-MYERS SQUIBB COMPANY-13934161

PATIENT
  Age: 51 Year
  Sex: Female

DRUGS (4)
  1. METFORMIN HCL [Suspect]
     Indication: INSULIN-REQUIRING TYPE II DIABETES MELLITUS
     Dosage: DISCONTINUED ON 21-SEP-2007 AND AGAIN RESTARTED ON 01-OCT-2007.
     Route: 048
     Dates: start: 20070801
  2. AMARYL [Suspect]
     Indication: INSULIN-REQUIRING TYPE II DIABETES MELLITUS
     Dosage: DISCONTINUED ON 21-SEP-2007 AND AGAIN RESTARTED ON 01-OCT-2007.
     Route: 048
     Dates: start: 20070801
  3. LANTUS [Suspect]
     Indication: INSULIN-REQUIRING TYPE II DIABETES MELLITUS
     Dosage: DISCONTINUED ON 21-SEP-2007 AND AGAIN RESTARTED ON 01-OCT-2007.
     Route: 058
     Dates: start: 20070801
  4. ENALAPRIL MALEATE [Concomitant]
     Dates: start: 20070705

REACTIONS (3)
  - HYPOGLYCAEMIA [None]
  - LOSS OF CONSCIOUSNESS [None]
  - SYNCOPE [None]
